FAERS Safety Report 7724303-8 (Version None)
Quarter: 2011Q3

REPORT INFORMATION
  Report Type: 
  Country: None (occurrence: None)
  Receive Date: 20110829
  Receipt Date: 20110818
  Transmission Date: 20111222
  Serious: Yes (Disabling, Other)
  Sender: FDA-Public Use
  Company Number: ACO_25193_2011

PATIENT
  Age: 35 Year
  Sex: Male
  Weight: 65.7716 kg

DRUGS (5)
  1. GILENYA [Suspect]
     Indication: PRODUCT USED FOR UNKNOWN INDICATION
     Dosage: 0.5 MG,  , ORAL
     Route: 048
     Dates: start: 20110501
  2. MARIJUANA (CANNABIS SATIVA) [Suspect]
  3. ASACOL HD (MESALAZINE) [Concomitant]
  4. MULTIVITAMIN AND MINERAL (ASCORBIC ACID, CALCIUM PANTOTHENATE, CALCIUM [Concomitant]
  5. AMPYRA [Suspect]
     Indication: GAIT DISTURBANCE
     Dosage: 10 MG, BID, ORAL
     Route: 048
     Dates: start: 20110501

REACTIONS (10)
  - MONOPLEGIA [None]
  - CONDITION AGGRAVATED [None]
  - GAIT DISTURBANCE [None]
  - DRUG EFFECT DECREASED [None]
  - BALANCE DISORDER [None]
  - CONSTIPATION [None]
  - PRURITUS [None]
  - DIZZINESS [None]
  - ASTHENIA [None]
  - DYSPEPSIA [None]
